FAERS Safety Report 24051249 (Version 1)
Quarter: 2024Q3

REPORT INFORMATION
  Report Type: Spontaneous
  Country: CN (occurrence: CN)
  Receive Date: 20240704
  Receipt Date: 20240704
  Transmission Date: 20241017
  Serious: Yes (Other)
  Sender: PFIZER
  Company Number: CN-PFIZER INC-PV202400085215

PATIENT
  Age: 68 Year
  Sex: Male

DRUGS (6)
  1. VORICONAZOLE [Interacting]
     Active Substance: VORICONAZOLE
     Indication: Antifungal treatment
     Dosage: 0.3 G, 2X/DAY (EVERY 12 HOURS)
     Route: 041
  2. SULFAMETHOXAZOLE [Interacting]
     Active Substance: SULFAMETHOXAZOLE
     Indication: Antifungal treatment
     Dosage: 1.44 G, 4X/DAY (EVERY 6 HOURS)
     Route: 048
  3. GANCICLOVIR [Concomitant]
     Active Substance: GANCICLOVIR
     Indication: Antiviral treatment
     Dosage: 300 MG, 2X/DAY (EVERY 12 HOURS)
     Route: 041
  4. TIGECYCLINE [Concomitant]
     Active Substance: TIGECYCLINE
     Indication: Antibiotic therapy
     Dosage: 100 MG, 2X/DAY (EVERY 12 HOURS)
     Route: 041
  5. NADROPARIN [Concomitant]
     Active Substance: NADROPARIN
     Indication: Anticoagulant therapy
     Dosage: 6150 IU, 2X/DAY (EVERY 12 HOURS)
     Route: 058
  6. OMEPRAZOLE [Concomitant]
     Active Substance: OMEPRAZOLE
     Indication: Gastrooesophageal reflux prophylaxis
     Dosage: 40 MG, 1X/DAY
     Route: 041

REACTIONS (3)
  - Potentiating drug interaction [Recovered/Resolved]
  - Hyperkalaemia [Recovered/Resolved]
  - Hyponatraemia [Recovered/Resolved]
